FAERS Safety Report 7953265-3 (Version None)
Quarter: 2011Q4

REPORT INFORMATION
  Report Type: 
  Country: None (occurrence: None)
  Receive Date: 20111201
  Receipt Date: 20111116
  Transmission Date: 20120403
  Serious: Yes (Hospitalization)
  Sender: FDA-Public Use
  Company Number: US-ROCHE-1014239

PATIENT
  Age: 15 Month
  Sex: Male

DRUGS (4)
  1. ACETAMINOPHEN [Concomitant]
     Dosage: PREMEDICATION
  2. ACTEMRA [Suspect]
     Indication: JUVENILE ARTHRITIS
     Dosage: FIRST INFUSION
     Route: 042
  3. ACTEMRA [Suspect]
     Dosage: RECEIVED SECOND INFUSION IN LAST WEEK
     Route: 042
  4. BENADRYL [Concomitant]
     Dosage: PREMEDICATION

REACTIONS (4)
  - RASH [None]
  - CARDIO-RESPIRATORY ARREST [None]
  - TYPE IV HYPERSENSITIVITY REACTION [None]
  - FACE OEDEMA [None]
